FAERS Safety Report 9129696 (Version 1)
Quarter: 2013Q1

REPORT INFORMATION
  Report Type: Spontaneous
  Country: DE (occurrence: DE)
  Receive Date: 20130228
  Receipt Date: 20130228
  Transmission Date: 20140127
  Serious: Yes (Hospitalization, Other)
  Sender: FDA-Public Use
  Company Number: DE-B.I. PHARMACEUTICALS,INC./RIDGEFIELD-2013-DE-00469DE

PATIENT
  Sex: Male

DRUGS (1)
  1. PRADAXA [Suspect]
     Dosage: 220 MG

REACTIONS (1)
  - Abdominal injury [Not Recovered/Not Resolved]
